FAERS Safety Report 13284903 (Version 1)
Quarter: 2017Q1

REPORT INFORMATION
  Report Type: Spontaneous
  Country: US (occurrence: US)
  Receive Date: 20170301
  Receipt Date: 20170301
  Transmission Date: 20170428
  Serious: No
  Sender: FDA-Public Use
  Company Number: US-BAYER-2017-039723

PATIENT
  Age: 46 Year
  Sex: Female

DRUGS (3)
  1. ESTRACE [Concomitant]
     Active Substance: ESTRADIOL
  2. CLIMARA [Suspect]
     Active Substance: ESTRADIOL
     Dosage: UNK
     Route: 062
     Dates: start: 20170224
  3. WELLBUTRIN [Concomitant]
     Active Substance: BUPROPION HYDROCHLORIDE
     Dosage: 150 MG

REACTIONS (4)
  - Fatigue [Not Recovered/Not Resolved]
  - Muscle spasms [Not Recovered/Not Resolved]
  - Somnolence [Not Recovered/Not Resolved]
  - Product adhesion issue [None]

NARRATIVE: CASE EVENT DATE: 201702
